FAERS Safety Report 7447912-2 (Version None)
Quarter: 2011Q2

REPORT INFORMATION
  Report Type: 
  Country: None (occurrence: None)
  Receive Date: 20110429
  Receipt Date: 20110104
  Transmission Date: 20111010
  Serious: No
  Sender: FDA-Public Use
  Company Number: US-ASTRAZENECA-2009UW11774

PATIENT
  Age: 74 Year
  Sex: Male
  Weight: 63.5 kg

DRUGS (3)
  1. TOPROL-XL [Suspect]
     Indication: HYPERTENSION
     Route: 048
     Dates: start: 20050101
  2. NEXIUM [Suspect]
     Route: 048
     Dates: start: 20040101
  3. TOPROL-XL [Suspect]
     Route: 048
     Dates: start: 20060101

REACTIONS (7)
  - MALAISE [None]
  - BLOOD PRESSURE INCREASED [None]
  - DRY EYE [None]
  - GOUT [None]
  - MYCOTIC ALLERGY [None]
  - GAIT DISTURBANCE [None]
  - HEADACHE [None]
